FAERS Safety Report 12140807 (Version 8)
Quarter: 2020Q1

REPORT INFORMATION
  Report Type: Report from Study
  Country: GB (occurrence: GB)
  Receive Date: 20160303
  Receipt Date: 20200110
  Transmission Date: 20200409
  Serious: Yes (Hospitalization)
  Sender: FDA-Public Use
  Company Number: BE-SA-2015SA085665

PATIENT
  Age: 35 Year
  Sex: Female
  Weight: 65.1 kg

DRUGS (1)
  1. ALEMTUZUMAB [Suspect]
     Active Substance: ALEMTUZUMAB
     Indication: RELAPSING MULTIPLE SCLEROSIS
     Dosage: 12 MG,QD
     Route: 041
     Dates: start: 20150319, end: 20150323

REACTIONS (7)
  - Central nervous system vasculitis [Recovered/Resolved]
  - Alopecia [Recovered/Resolved]
  - Thyroid disorder [Recovered/Resolved]
  - Petit mal epilepsy [Recovered/Resolved]
  - Lymphocyte count decreased [Not Recovered/Not Resolved]
  - Rash [Recovered/Resolved]
  - Rash [Recovered/Resolved]

NARRATIVE: CASE EVENT DATE: 2015
